FAERS Safety Report 10597739 (Version 2)
Quarter: 2014Q4

REPORT INFORMATION
  Report Type: Spontaneous
  Country: BR (occurrence: BR)
  Receive Date: 20141121
  Receipt Date: 20141202
  Transmission Date: 20150529
  Serious: Yes (Hospitalization, Disabling, Other)
  Sender: FDA-Public Use
  Company Number: BR-ROCHE-1493257

PATIENT
  Age: 59 Year
  Sex: Male
  Weight: 90.07 kg

DRUGS (1)
  1. LUCENTIS [Suspect]
     Active Substance: RANIBIZUMAB
     Indication: HAEMORRHAGE
     Route: 050
     Dates: start: 201304

REACTIONS (7)
  - Visual impairment [Recovering/Resolving]
  - Visual impairment [Recovered/Resolved]
  - Wrong technique in drug usage process [Unknown]
  - Blindness [Not Recovered/Not Resolved]
  - Blindness unilateral [Recovering/Resolving]
  - Off label use [Unknown]
  - Visual acuity reduced [Recovering/Resolving]

NARRATIVE: CASE EVENT DATE: 201304
